FAERS Safety Report 9314669 (Version 2)
Quarter: 2013Q3

REPORT INFORMATION
  Report Type: Spontaneous
  Country: IT (occurrence: IT)
  Receive Date: 20130529
  Receipt Date: 20130715
  Transmission Date: 20140515
  Serious: Yes (Other)
  Sender: FDA-Public Use
  Company Number: IT-SANOFI-AVENTIS-2013SA053214

PATIENT
  Age: 86 Year
  Sex: Male

DRUGS (10)
  1. LASIX [Suspect]
     Indication: CARDIAC FAILURE CONGESTIVE
     Route: 048
     Dates: start: 20130512, end: 20130519
  2. LASITONE [Suspect]
     Indication: CARDIAC FAILURE CONGESTIVE
     Dosage: DOSE:1 UNIT(S)
     Route: 048
     Dates: start: 20130512, end: 20130519
  3. BISOPROLOL HEMIFUMARATE [Concomitant]
     Route: 048
  4. MEDROL [Concomitant]
     Route: 048
  5. ZAROXOLYN [Concomitant]
  6. OMNIC [Concomitant]
  7. LYRICA [Concomitant]
  8. COUMADIN [Concomitant]
     Route: 048
  9. TRIATEC [Concomitant]
     Indication: HYPERTENSION
     Route: 048
     Dates: start: 20130101
  10. EUTIROX [Concomitant]
     Route: 048

REACTIONS (2)
  - Syncope [Recovering/Resolving]
  - Renal failure [Recovering/Resolving]
